FAERS Safety Report 24178781 (Version 2)
Quarter: 2024Q3

REPORT INFORMATION
  Report Type: Spontaneous
  Country: JP (occurrence: JP)
  Receive Date: 20240806
  Receipt Date: 20240816
  Transmission Date: 20241017
  Serious: Yes (Hospitalization)
  Sender: BRISTOL MYERS SQUIBB
  Company Number: JP-BRISTOL-MYERS SQUIBB COMPANY-2024-122256

PATIENT
  Age: 68 Year
  Sex: Male
  Weight: 63 kg

DRUGS (7)
  1. ELIQUIS [Suspect]
     Active Substance: APIXABAN
     Indication: Atrial fibrillation
     Route: 048
  2. ELIQUIS [Suspect]
     Active Substance: APIXABAN
     Route: 048
     Dates: start: 20240720, end: 20240725
  3. CARVEDILOL [Concomitant]
     Active Substance: CARVEDILOL
     Route: 048
  4. LANSOPRAZOLE [Concomitant]
     Active Substance: LANSOPRAZOLE
     Route: 048
  5. ILUAMIX COMBINATION LD EE [Concomitant]
     Route: 048
  6. JARDIANCE [Concomitant]
     Active Substance: EMPAGLIFLOZIN
     Route: 048
  7. PITAVASTATIN [Concomitant]
     Active Substance: PITAVASTATIN
     Route: 048

REACTIONS (3)
  - Haematoma [Recovering/Resolving]
  - Oedema [Recovered/Resolved]
  - Haemorrhage subcutaneous [Recovering/Resolving]

NARRATIVE: CASE EVENT DATE: 20240723
